FAERS Safety Report 5593707-4 (Version None)
Quarter: 2008Q1

REPORT INFORMATION
  Report Type: 
  Country: None (occurrence: None)
  Receive Date: 20080116
  Receipt Date: 20080108
  Transmission Date: 20080703
  Serious: Yes (Life-Threatening, Hospitalization)
  Sender: FDA-Public Use
  Company Number: US-GENENTECH-251538

PATIENT
  Sex: Female
  Weight: 45.351 kg

DRUGS (15)
  1. BEVACIZUMAB [Suspect]
     Indication: BREAST CANCER
     Dosage: 509 MG, Q4W
     Route: 042
     Dates: start: 20070629, end: 20070713
  2. BEVACIZUMAB [Suspect]
     Dosage: 460 MG, Q4W
     Route: 042
     Dates: start: 20070807, end: 20070921
  3. PACLITAXEL [Suspect]
     Indication: BREAST CANCER
     Dosage: 140 MG, Q4W
     Route: 042
     Dates: start: 20070629, end: 20070713
  4. PACLITAXEL [Suspect]
     Dosage: 135 MG, Q4W
     Route: 042
     Dates: start: 20070807, end: 20070921
  5. FOLIC ACID [Concomitant]
     Indication: DRUG USE FOR UNKNOWN INDICATION
     Route: 048
     Dates: start: 20010101
  6. TOPROL-XL [Concomitant]
     Indication: HYPERTENSION
     Route: 048
     Dates: start: 20010101
  7. PLAVIX [Concomitant]
     Indication: HYPERCHOLESTEROLAEMIA
     Route: 048
     Dates: start: 20010101
  8. IMDUR [Concomitant]
     Indication: PROPHYLAXIS
     Route: 048
     Dates: start: 20010101
  9. CIMETIDINE [Concomitant]
     Indication: PROPHYLAXIS
     Route: 048
     Dates: start: 20010101
  10. OXYCODONE [Concomitant]
     Route: 048
     Dates: start: 20060726
  11. CADUET [Concomitant]
     Indication: HYPERTENSION
     Route: 048
     Dates: start: 20060823
  12. CADUET [Concomitant]
     Indication: CARDIAC FAILURE
  13. BENADRYL [Concomitant]
     Indication: DRUG USE FOR UNKNOWN INDICATION
     Route: 048
     Dates: start: 20070713
  14. CODEINE/GUAIFENESIN [Concomitant]
     Indication: DRUG USE FOR UNKNOWN INDICATION
     Route: 048
     Dates: start: 20070719
  15. MEGACE [Concomitant]
     Indication: DRUG USE FOR UNKNOWN INDICATION
     Route: 048
     Dates: start: 20070824

REACTIONS (2)
  - CARDIOMYOPATHY [None]
  - RENAL FAILURE [None]
